FAERS Safety Report 5163640-0 (Version None)
Quarter: 2006Q4

REPORT INFORMATION
  Report Type: 
  Country: None (occurrence: None)
  Receive Date: 20061124
  Receipt Date: 20061114
  Transmission Date: 20070319
  Serious: Yes (Other)
  Sender: FDA-Public Use
  Company Number: 2006142140

PATIENT
  Age: 45 Year
  Sex: Male
  Weight: 86.1834 kg

DRUGS (7)
  1. LYRICA [Suspect]
     Indication: BACK PAIN
     Dates: start: 20060101
  2. STRATTERA [Concomitant]
  3. LORAZEPAM [Concomitant]
  4. LASIX [Concomitant]
  5. LAMICTAL [Concomitant]
  6. TOPROL-XL [Concomitant]
  7. ALL OTHER THERAPEUTIC PRODUCTS (ALL  OTHER THERAPEUTIC PRODUCTS) [Concomitant]

REACTIONS (6)
  - DRY MOUTH [None]
  - FALL [None]
  - GAIT DISTURBANCE [None]
  - HEAD INJURY [None]
  - MENTAL IMPAIRMENT [None]
  - OEDEMA [None]
